FAERS Safety Report 21099079 (Version 11)
Quarter: 2024Q1

REPORT INFORMATION
  Report Type: Spontaneous
  Country: CA (occurrence: CA)
  Receive Date: 20220719
  Receipt Date: 20240325
  Transmission Date: 20240409
  Serious: Yes (Congenital Anomaly, Other)
  Sender: FDA-Public Use
  Company Number: CA-JNJFOC-20220725040

PATIENT
  Age: 66 Year
  Sex: Male
  Weight: 70 kg

DRUGS (76)
  1. BUDESONIDE [Suspect]
     Active Substance: BUDESONIDE
     Indication: Product used for unknown indication
     Route: 065
  2. BUDESONIDE [Suspect]
     Active Substance: BUDESONIDE
     Route: 065
  3. BUDESONIDE [Suspect]
     Active Substance: BUDESONIDE
     Route: 065
  4. BUDESONIDE [Suspect]
     Active Substance: BUDESONIDE
     Route: 065
  5. ELIQUIS [Suspect]
     Active Substance: APIXABAN
     Indication: Product used for unknown indication
     Route: 065
  6. ELIQUIS [Suspect]
     Active Substance: APIXABAN
     Route: 065
  7. ELIQUIS [Suspect]
     Active Substance: APIXABAN
     Route: 065
  8. ELIQUIS [Suspect]
     Active Substance: APIXABAN
     Route: 065
  9. ELIQUIS [Suspect]
     Active Substance: APIXABAN
     Route: 065
  10. EPINEPHRINE [Suspect]
     Active Substance: EPINEPHRINE
     Indication: Product used for unknown indication
     Route: 065
  11. EPINEPHRINE [Suspect]
     Active Substance: EPINEPHRINE
     Indication: Anaphylactic reaction
     Route: 065
  12. OMALIZUMAB [Suspect]
     Active Substance: OMALIZUMAB
     Indication: Product used for unknown indication
     Route: 065
  13. OMALIZUMAB [Suspect]
     Active Substance: OMALIZUMAB
     Route: 048
  14. PREDNISONE [Suspect]
     Active Substance: PREDNISONE
     Indication: Asthma
     Route: 065
  15. PREDNISONE [Suspect]
     Active Substance: PREDNISONE
     Indication: Product used for unknown indication
     Route: 048
  16. PREDNISONE [Suspect]
     Active Substance: PREDNISONE
     Route: 048
  17. PREDNISONE [Suspect]
     Active Substance: PREDNISONE
     Route: 048
  18. PREDNISONE [Suspect]
     Active Substance: PREDNISONE
     Route: 048
  19. PREVNAR 13 [Suspect]
     Active Substance: STREPTOCOCCUS PNEUMONIAE TYPE 1 CAPSULAR POLYSACCHARIDE DIPHTHERIA CRM197 PROTEIN CONJUGATE ANTIGEN\
     Indication: Immunisation
     Route: 030
  20. PREVNAR 13 [Suspect]
     Active Substance: STREPTOCOCCUS PNEUMONIAE TYPE 1 CAPSULAR POLYSACCHARIDE DIPHTHERIA CRM197 PROTEIN CONJUGATE ANTIGEN\
     Indication: Product used for unknown indication
     Route: 030
  21. PREVNAR 13 [Suspect]
     Active Substance: STREPTOCOCCUS PNEUMONIAE TYPE 1 CAPSULAR POLYSACCHARIDE DIPHTHERIA CRM197 PROTEIN CONJUGATE ANTIGEN\
     Route: 030
  22. PREVNAR 13 [Suspect]
     Active Substance: STREPTOCOCCUS PNEUMONIAE TYPE 1 CAPSULAR POLYSACCHARIDE DIPHTHERIA CRM197 PROTEIN CONJUGATE ANTIGEN\
     Route: 030
  23. ALBUTEROL [Suspect]
     Active Substance: ALBUTEROL
     Indication: Product used for unknown indication
     Route: 065
  24. ALBUTEROL [Suspect]
     Active Substance: ALBUTEROL
     Route: 065
  25. ALBUTEROL [Suspect]
     Active Substance: ALBUTEROL
     Route: 065
  26. UMECLIDINIUM BROMIDE [Suspect]
     Active Substance: UMECLIDINIUM BROMIDE
     Indication: Product used for unknown indication
     Route: 065
  27. UMECLIDINIUM BROMIDE [Suspect]
     Active Substance: UMECLIDINIUM BROMIDE
     Route: 065
  28. UMECLIDINIUM BROMIDE [Suspect]
     Active Substance: UMECLIDINIUM BROMIDE
     Route: 065
  29. UMECLIDINIUM BROMIDE [Suspect]
     Active Substance: UMECLIDINIUM BROMIDE
     Route: 065
  30. APIXABAN [Suspect]
     Active Substance: APIXABAN
     Indication: Product used for unknown indication
     Route: 065
  31. APIXABAN [Suspect]
     Active Substance: APIXABAN
     Route: 065
  32. APIXABAN [Suspect]
     Active Substance: APIXABAN
     Route: 065
  33. EPINEPHRINE BITARTRATE [Suspect]
     Active Substance: EPINEPHRINE BITARTRATE
     Indication: Anaphylactic reaction
     Route: 065
  34. LEVALBUTEROL [Suspect]
     Active Substance: LEVALBUTEROL
     Indication: Product used for unknown indication
     Route: 065
  35. LEVALBUTEROL [Suspect]
     Active Substance: LEVALBUTEROL
     Route: 065
  36. EPINEPHRINE HYDROCHLORIDE [Suspect]
     Active Substance: EPINEPHRINE HYDROCHLORIDE
     Indication: Anaphylactic reaction
     Route: 065
  37. PNEUMOCOCCAL 13-VALENT CONJUGATE VACCINE [Suspect]
     Active Substance: PNEUMOCOCCAL 13-VALENT CONJUGATE VACCINE
     Indication: Immunisation
     Route: 030
  38. PNEUMOCOCCAL 13-VALENT CONJUGATE VACCINE [Suspect]
     Active Substance: PNEUMOCOCCAL 13-VALENT CONJUGATE VACCINE
     Route: 030
  39. PNEUMOCOCCAL 13-VALENT CONJUGATE VACCINE [Suspect]
     Active Substance: PNEUMOCOCCAL 13-VALENT CONJUGATE VACCINE
     Route: 030
  40. PNEUMOCOCCAL 13-VALENT CONJUGATE VACCINE [Suspect]
     Active Substance: PNEUMOCOCCAL 13-VALENT CONJUGATE VACCINE
     Route: 065
  41. ALBUTEROL SULFATE [Suspect]
     Active Substance: ALBUTEROL SULFATE
     Indication: Product used for unknown indication
     Route: 065
  42. XOLAIR [Suspect]
     Active Substance: OMALIZUMAB
     Indication: Product used for unknown indication
     Route: 065
  43. MEPOLIZUMAB [Suspect]
     Active Substance: MEPOLIZUMAB
     Indication: Asthma
     Route: 058
  44. MEPOLIZUMAB [Suspect]
     Active Substance: MEPOLIZUMAB
     Route: 058
  45. MEPOLIZUMAB [Suspect]
     Active Substance: MEPOLIZUMAB
     Route: 058
  46. NUCALA [Suspect]
     Active Substance: MEPOLIZUMAB
     Indication: Asthma
     Route: 058
  47. NUCALA [Suspect]
     Active Substance: MEPOLIZUMAB
     Route: 065
  48. NUCALA [Suspect]
     Active Substance: MEPOLIZUMAB
     Route: 065
  49. PNEUMOCOCCAL VACCINE POLYVALENT NOS [Suspect]
     Active Substance: PNEUMOCOCCAL VACCINE POLYVALENT
     Indication: Immunisation
     Route: 030
  50. PNEUMOCOCCAL VACCINE POLYVALENT NOS [Suspect]
     Active Substance: PNEUMOCOCCAL VACCINE POLYVALENT
     Route: 065
  51. PNEUMOCOCCAL VACCINE POLYVALENT NOS [Suspect]
     Active Substance: PNEUMOCOCCAL VACCINE POLYVALENT
     Route: 030
  52. PNEUMOCOCCAL VACCINE POLYVALENT NOS [Suspect]
     Active Substance: PNEUMOCOCCAL VACCINE POLYVALENT
     Route: 030
  53. PNEUMOCOCCAL VACCINE POLYVALENT NOS [Suspect]
     Active Substance: PNEUMOCOCCAL VACCINE POLYVALENT
     Route: 065
  54. APIXABAN [Suspect]
     Active Substance: APIXABAN
     Indication: Product used for unknown indication
     Route: 065
  55. APIXABAN [Suspect]
     Active Substance: APIXABAN
     Route: 065
  56. APIXABAN [Suspect]
     Active Substance: APIXABAN
     Route: 065
  57. APIXABAN [Suspect]
     Active Substance: APIXABAN
     Route: 065
  58. APIXABAN [Suspect]
     Active Substance: APIXABAN
     Route: 065
  59. UMECLIDINIUM [Suspect]
     Active Substance: UMECLIDINIUM
     Indication: Product used for unknown indication
     Route: 065
  60. UMECLIDINIUM [Suspect]
     Active Substance: UMECLIDINIUM
     Route: 065
  61. UMECLIDINIUM [Suspect]
     Active Substance: UMECLIDINIUM
     Route: 065
  62. UMECLIDINIUM [Suspect]
     Active Substance: UMECLIDINIUM
     Route: 065
  63. EPINEPHRINE BITARTRATE [Concomitant]
     Active Substance: EPINEPHRINE BITARTRATE
     Indication: Anaphylactic reaction
     Route: 065
  64. MEPOLIZUMAB [Concomitant]
     Active Substance: MEPOLIZUMAB
     Indication: Asthma
     Route: 058
  65. NUCALA [Concomitant]
     Active Substance: MEPOLIZUMAB
     Indication: Asthma
     Route: 058
  66. OMALIZUMAB [Concomitant]
     Active Substance: OMALIZUMAB
     Indication: Product used for unknown indication
     Route: 048
  67. OMALIZUMAB [Concomitant]
     Active Substance: OMALIZUMAB
     Route: 065
  68. PNEUMOCOCCAL 13-VALENT CONJUGATE VACCINE [Concomitant]
     Active Substance: PNEUMOCOCCAL 13-VALENT CONJUGATE VACCINE
     Indication: Immunisation
     Route: 030
  69. ALBUTEROL [Concomitant]
     Active Substance: ALBUTEROL
     Indication: Product used for unknown indication
     Route: 055
  70. UMECLIDINIUM [Concomitant]
     Active Substance: UMECLIDINIUM
     Indication: Product used for unknown indication
     Route: 065
  71. UMECLIDINIUM [Concomitant]
     Active Substance: UMECLIDINIUM
     Route: 065
  72. UMECLIDINIUM BROMIDE\VILANTEROL TRIFENATATE [Concomitant]
     Active Substance: UMECLIDINIUM BROMIDE\VILANTEROL TRIFENATATE
     Indication: Product used for unknown indication
     Route: 065
  73. UMECLIDINIUM BROMIDE\VILANTEROL TRIFENATATE [Concomitant]
     Active Substance: UMECLIDINIUM BROMIDE\VILANTEROL TRIFENATATE
     Route: 065
  74. FORMOTEROL FUMARATE [Concomitant]
     Active Substance: FORMOTEROL FUMARATE
     Indication: Product used for unknown indication
     Route: 065
  75. RACEPINEPHRINE HYDROCHLORIDE [Concomitant]
     Active Substance: RACEPINEPHRINE HYDROCHLORIDE
     Indication: Product used for unknown indication
     Route: 065
  76. SPIRIVA [Concomitant]
     Active Substance: TIOTROPIUM BROMIDE MONOHYDRATE
     Indication: Product used for unknown indication
     Route: 065

REACTIONS (19)
  - Asthma [Not Recovered/Not Resolved]
  - Bronchopulmonary aspergillosis [Not Recovered/Not Resolved]
  - Chronic obstructive pulmonary disease [Not Recovered/Not Resolved]
  - Coagulation factor V level abnormal [Not Recovered/Not Resolved]
  - Dyspnoea [Not Recovered/Not Resolved]
  - Multiple allergies [Not Recovered/Not Resolved]
  - Bronchopulmonary aspergillosis allergic [Not Recovered/Not Resolved]
  - Factor V Leiden mutation [Not Recovered/Not Resolved]
  - Loss of personal independence in daily activities [Not Recovered/Not Resolved]
  - Coagulation factor deficiency [Not Recovered/Not Resolved]
  - Acquired factor V deficiency [Not Recovered/Not Resolved]
  - Hypertension [Not Recovered/Not Resolved]
  - Congenital anomaly [Not Recovered/Not Resolved]
  - Dry skin [Not Recovered/Not Resolved]
  - Off label use [Not Recovered/Not Resolved]
  - Erythema [Not Recovered/Not Resolved]
  - Pruritus [Not Recovered/Not Resolved]
  - Therapeutic product effect incomplete [Not Recovered/Not Resolved]
  - Drug ineffective [Not Recovered/Not Resolved]
